FAERS Safety Report 9454180 (Version 1)
Quarter: 2013Q3

REPORT INFORMATION
  Report Type: Report from Study
  Country: US (occurrence: US)
  Receive Date: 20130812
  Receipt Date: 20130812
  Transmission Date: 20140515
  Serious: Yes (Disabling)
  Sender: FDA-Public Use
  Company Number: US-ACTELION-A-NJ2013-84568

PATIENT
  Age: 64 Year
  Sex: Male

DRUGS (5)
  1. TRACLEER [Suspect]
     Indication: PULMONARY ARTERIAL HYPERTENSION
     Dosage: 62.5 MG, BID
     Route: 048
     Dates: start: 20130523, end: 20130607
  2. ADCIRCA [Concomitant]
  3. TYVASO [Concomitant]
  4. SERTRALINE [Concomitant]
  5. AMBIEN [Concomitant]

REACTIONS (3)
  - Vision blurred [Recovering/Resolving]
  - Condition aggravated [Recovering/Resolving]
  - Oedema [Recovering/Resolving]
